FAERS Safety Report 7535641-6 (Version None)
Quarter: 2011Q2

REPORT INFORMATION
  Report Type: 
  Country: None (occurrence: None)
  Receive Date: 20110607
  Receipt Date: 20110607
  Transmission Date: 20111010
  Serious: Yes (Other)
  Sender: FDA-Public Use
  Company Number: None

PATIENT
  Age: 35 Year
  Sex: Male
  Weight: 81.6475 kg

DRUGS (1)
  1. BENZTROPINE MESYLATE [Suspect]

REACTIONS (4)
  - DYSKINESIA [None]
  - VISION BLURRED [None]
  - WEIGHT INCREASED [None]
  - THIRST [None]
